FAERS Safety Report 16347053 (Version 1)
Quarter: 2019Q2

REPORT INFORMATION
  Report Type: Spontaneous
  Country: US (occurrence: US)
  Receive Date: 20190523
  Receipt Date: 20190523
  Transmission Date: 20190711
  Serious: No
  Sender: FDA-Public Use
  Company Number: US-TARO-2018TAR00582

PATIENT
  Age: 57 Year
  Sex: Female
  Weight: 77.1 kg

DRUGS (7)
  1. ZYRTEC [Concomitant]
     Active Substance: CETIRIZINE HYDROCHLORIDE
  2. CLARITIN [Concomitant]
     Active Substance: LORATADINE
  3. LOSARTAN. [Concomitant]
     Active Substance: LOSARTAN
  4. CLOTRIMAZOLE VAGINAL CREAM USP 2% 3 DAY [Suspect]
     Active Substance: CLOTRIMAZOLE
     Indication: FUNGAL INFECTION
     Dosage: 1 DOSAGE UNITS, 1X/DAY
     Route: 067
     Dates: start: 20180801, end: 20180803
  5. DOXYCYCLINE. [Concomitant]
     Active Substance: DOXYCYCLINE
  6. TAMOXIFEN [Concomitant]
     Active Substance: TAMOXIFEN
  7. FENOFIBRATE. [Concomitant]
     Active Substance: FENOFIBRATE

REACTIONS (3)
  - Product quality issue [Recovered/Resolved]
  - Drug ineffective [Recovered/Resolved]
  - Underdose [Recovered/Resolved]

NARRATIVE: CASE EVENT DATE: 20180801
